FAERS Safety Report 7783921-1 (Version None)
Quarter: 2011Q3

REPORT INFORMATION
  Report Type: 
  Country: None (occurrence: None)
  Receive Date: 20110928
  Receipt Date: 20110926
  Transmission Date: 20111222
  Serious: Yes (Other)
  Sender: FDA-Public Use
  Company Number: DE-GLAXOSMITHKLINE-D0072858A

PATIENT
  Sex: Female

DRUGS (1)
  1. TROBALT [Suspect]
     Route: 048

REACTIONS (2)
  - PANCREATITIS [None]
  - DIARRHOEA [None]
